FAERS Safety Report 25955348 (Version 1)
Quarter: 2025Q4

REPORT INFORMATION
  Report Type: Report from Study
  Country: US (occurrence: US)
  Receive Date: 20251024
  Receipt Date: 20251024
  Transmission Date: 20260118
  Serious: Yes (Hospitalization, Other)
  Sender: IPSEN BIOPHARMACEUTICALS, INC.
  Company Number: US-IPSEN Group, Research and Development-2023-14775

PATIENT
  Age: 61 Year
  Sex: Female
  Weight: 63.96 kg

DRUGS (4)
  1. ONIVYDE [Suspect]
     Active Substance: IRINOTECAN HYDROCHLORIDE
     Indication: Oesophageal adenocarcinoma
     Dosage: 90.3 MG, EVERY 15 DAYS
     Dates: start: 20230525, end: 20230525
  2. FLUOROURACIL [Suspect]
     Active Substance: FLUOROURACIL
     Indication: Oesophageal adenocarcinoma
     Dosage: 4400 MG, EVERY 15 DAYS
     Dates: start: 20230525, end: 20230525
  3. NIVOLUMAB [Concomitant]
     Active Substance: NIVOLUMAB
  4. OXALIPLATIN [Concomitant]
     Active Substance: OXALIPLATIN

REACTIONS (20)
  - Dyspnoea [Unknown]
  - Febrile neutropenia [Unknown]
  - Fatigue [Unknown]
  - Peripheral swelling [Unknown]
  - Diarrhoea [Unknown]
  - Febrile neutropenia [Recovered/Resolved]
  - Diarrhoea [Unknown]
  - Febrile neutropenia [Unknown]
  - Oesophageal abscess [Unknown]
  - Oesophageal perforation [Unknown]
  - Pancytopenia [Recovering/Resolving]
  - Gastrointestinal haemorrhage [Unknown]
  - Mucosal inflammation [Unknown]
  - Oral candidiasis [Unknown]
  - Dysphagia [Unknown]
  - Pleural effusion [Unknown]
  - Respiratory failure [Unknown]
  - Hypervolaemia [Unknown]
  - COVID-19 pneumonia [Unknown]
  - Urinary tract infection [Unknown]

NARRATIVE: CASE EVENT DATE: 20230606
